FAERS Safety Report 4315889-4 (Version None)
Quarter: 2004Q1

REPORT INFORMATION
  Report Type: 
  Country: None (occurrence: None)
  Receive Date: 20040311
  Receipt Date: 20040311
  Transmission Date: 20041129
  Serious: Yes (Hospitalization)
  Sender: FDA-Public Use
  Company Number: None

PATIENT
  Age: 75 Year
  Sex: Female

DRUGS (2)
  1. NORVASC [Suspect]
     Indication: HYPERTENSION
     Dates: start: 20040127, end: 20040310
  2. DIOVAN [Concomitant]

REACTIONS (3)
  - FLUSHING [None]
  - MUSCLE SPASMS [None]
  - TREMOR [None]
